FAERS Safety Report 21188902 (Version 1)
Quarter: 2022Q3

REPORT INFORMATION
  Report Type: Spontaneous
  Country: CN (occurrence: None)
  Receive Date: 20220809
  Receipt Date: 20220809
  Transmission Date: 20221027
  Serious: Yes (Hospitalization)
  Sender: FDA-Public Use
  Company Number: CN-ROCHE-3156039

PATIENT
  Age: 52 Year
  Sex: Female
  Weight: 63 kg

DRUGS (2)
  1. XELODA [Suspect]
     Active Substance: CAPECITABINE
     Indication: Fallopian tube cancer
     Route: 048
     Dates: start: 20220608, end: 20220621
  2. OXALIPLATIN [Suspect]
     Active Substance: OXALIPLATIN
     Indication: Fallopian tube cancer
     Route: 041
     Dates: start: 20220608, end: 20220608

REACTIONS (2)
  - Myelosuppression [Recovering/Resolving]
  - Off label use [Unknown]

NARRATIVE: CASE EVENT DATE: 20220617
